FAERS Safety Report 10059799 (Version 1)
Quarter: 2014Q2

REPORT INFORMATION
  Report Type: Spontaneous
  Country: US (occurrence: US)
  Receive Date: 20140404
  Receipt Date: 20140404
  Transmission Date: 20141212
  Serious: Yes (Hospitalization, Disabling, Other)
  Sender: FDA-Public Use
  Company Number: US-ABBVIE-14P-163-1219797-00

PATIENT
  Age: 55 Year
  Sex: Male

DRUGS (2)
  1. ANDROGEL [Suspect]
     Indication: BLOOD TESTOSTERONE DECREASED
     Dosage: 4 PUMPS PER DAY
  2. ANDROGEL [Suspect]
     Indication: BLOOD TESTOSTERONE DECREASED

REACTIONS (10)
  - Myocardial infarction [Unknown]
  - Injury [Unknown]
  - Deformity [Unknown]
  - Social problem [Unknown]
  - Anhedonia [Unknown]
  - Life expectancy shortened [Unknown]
  - Social problem [Unknown]
  - Loss of employment [Unknown]
  - Physical disability [Unknown]
  - Pain [Unknown]
